FAERS Safety Report 24278539 (Version 1)
Quarter: 2024Q3

REPORT INFORMATION
  Report Type: Spontaneous
  Country: AU (occurrence: AU)
  Receive Date: 20240903
  Receipt Date: 20240903
  Transmission Date: 20241017
  Serious: Yes (Other)
  Sender: ORGANON
  Company Number: AU-ORGANON-O2408AUS002147

PATIENT
  Sex: Female

DRUGS (1)
  1. ORGALUTRAN [Suspect]
     Active Substance: GANIRELIX ACETATE
     Indication: In vitro fertilisation
     Dosage: UNK

REACTIONS (1)
  - Syncope [Unknown]
